FAERS Safety Report 18490230 (Version 1)
Quarter: 2020Q4

REPORT INFORMATION
  Report Type: Spontaneous
  Country: US (occurrence: US)
  Receive Date: 20201111
  Receipt Date: 20201111
  Transmission Date: 20210114
  Serious: Yes (Hospitalization)
  Sender: FDA-Public Use
  Company Number: None

PATIENT
  Sex: Male
  Weight: 54.8 kg

DRUGS (4)
  1. ONCASPAR [Concomitant]
     Active Substance: PEGASPARGASE
  2. CYTARABINE. [Concomitant]
     Active Substance: CYTARABINE
  3. CYCLOPHOSPHAMIDE. [Suspect]
     Active Substance: CYCLOPHOSPHAMIDE
  4. VINCRISTINE SULFATE. [Concomitant]
     Active Substance: VINCRISTINE SULFATE

REACTIONS (5)
  - Device related infection [None]
  - Vomiting [None]
  - Erythema [None]
  - Nausea [None]
  - Febrile neutropenia [None]

NARRATIVE: CASE EVENT DATE: 20201106
